FAERS Safety Report 7336319-4 (Version None)
Quarter: 2011Q1

REPORT INFORMATION
  Report Type: 
  Country: None (occurrence: None)
  Receive Date: 20110307
  Receipt Date: 20110224
  Transmission Date: 20110831
  Serious: Yes (Disabling)
  Sender: FDA-Public Use
  Company Number: IN-ASTRAZENECA-2011SE10535

PATIENT

DRUGS (3)
  1. XYLOCAINE [Suspect]
     Indication: ANAESTHESIA
     Route: 065
  2. HYALACE [Concomitant]
  3. SENSORCAINE [Suspect]
     Indication: ANAESTHESIA
     Route: 065

REACTIONS (5)
  - BLINDNESS UNILATERAL [None]
  - POST PROCEDURAL COMPLICATION [None]
  - EYE INFLAMMATION [None]
  - PRODUCT CONTAMINATION CHEMICAL [None]
  - BLINDNESS [None]
